FAERS Safety Report 6044145-1 (Version None)
Quarter: 2009Q1

REPORT INFORMATION
  Report Type: 
  Country: None (occurrence: None)
  Receive Date: 20090120
  Receipt Date: 20090112
  Transmission Date: 20090719
  Serious: Yes (Hospitalization, Other)
  Sender: FDA-Public Use
  Company Number: US-ELI_LILLY_AND_COMPANY-US200811001360

PATIENT
  Sex: Female
  Weight: 90.703 kg

DRUGS (11)
  1. HUMALOG MIX 75/25 [Suspect]
     Indication: DIABETES MELLITUS
     Dosage: 78 U, UNK
  2. HUMALOG MIX 75/25 [Suspect]
     Dosage: 60 U, 2/D
  3. HUMALOG MIX 75/25 [Suspect]
     Dosage: 12 U, DAILY (1/D)
  4. ACTOS [Concomitant]
     Indication: DIABETES MELLITUS
  5. LASIX [Concomitant]
     Indication: CORONARY ARTERY DISEASE
     Dosage: 20 MG, UNK
     Route: 048
  6. SYNTHROID [Concomitant]
     Indication: HYPOTHYROIDISM
     Dosage: 137 MG, UNK
     Route: 048
  7. TOPROL-XL [Concomitant]
     Indication: CORONARY ARTERY DISEASE
     Dosage: 100 MG, UNK
     Route: 048
  8. DIGOXIN [Concomitant]
     Indication: CORONARY ARTERY DISEASE
     Dosage: 0.125 MG, UNK
     Route: 048
  9. CRESTOR [Concomitant]
     Indication: BLOOD CHOLESTEROL INCREASED
     Dosage: 10 MG, UNK
     Route: 048
  10. ISOSORBIDE DINITRATE [Concomitant]
     Indication: CORONARY ARTERY DISEASE
     Dosage: 30 MG, UNK
     Route: 048
  11. DILTIAZEM [Concomitant]
     Indication: CORONARY ARTERY DISEASE
     Dosage: 120 MG, UNK
     Route: 048

REACTIONS (6)
  - ABDOMINAL PAIN UPPER [None]
  - AORTIC VALVE REPLACEMENT [None]
  - CORONARY ARTERY BYPASS [None]
  - DIVERTICULITIS [None]
  - FEELING ABNORMAL [None]
  - MEMORY IMPAIRMENT [None]
